FAERS Safety Report 9939326 (Version 1)
Quarter: 2014Q1

REPORT INFORMATION
  Report Type: Report from Study
  Country: US (occurrence: US)
  Receive Date: 20140303
  Receipt Date: 20140303
  Transmission Date: 20141002
  Serious: No
  Sender: FDA-Public Use
  Company Number: US-ABBVIE-13P-163-1038313-00

PATIENT
  Age: 40 Year
  Sex: Male

DRUGS (6)
  1. HUMIRA [Suspect]
     Indication: CROHN^S DISEASE
     Dates: start: 20130103
  2. SULFASALAZINE [Concomitant]
     Indication: PRODUCT USED FOR UNKNOWN INDICATION
  3. HYDROXYCHLOR [Concomitant]
     Indication: ARTHRALGIA
  4. ROPINIROLE [Concomitant]
     Indication: RESTLESS LEGS SYNDROME
     Dosage: 1MG DAILY
  5. ATENOLOL [Concomitant]
     Indication: HYPERTENSION
     Dosage: 50MG ONCE DAILY
  6. ZOLOFT [Concomitant]
     Indication: DEPRESSION
     Dosage: 100MG DAILY

REACTIONS (1)
  - Skin irritation [Not Recovered/Not Resolved]
